FAERS Safety Report 6343893-3 (Version None)
Quarter: 2009Q3

REPORT INFORMATION
  Report Type: 
  Country: None (occurrence: None)
  Receive Date: 20090908
  Receipt Date: 20090825
  Transmission Date: 20100115
  Serious: Yes (Disabling, Other)
  Sender: FDA-Public Use
  Company Number: JP-PFIZER INC-2009248496

PATIENT
  Age: 68 Year

DRUGS (4)
  1. SUNITINIB MALATE [Suspect]
     Indication: RENAL CELL CARCINOMA
     Dosage: 50 MG, 1X/DAY
     Route: 048
     Dates: start: 20090402
  2. TENORMIN [Concomitant]
     Dosage: UNK
     Route: 048
  3. AMLODIPINE [Concomitant]
     Route: 048
     Dates: end: 20090414
  4. FERROMIA [Concomitant]
     Route: 048
     Dates: end: 20090425

REACTIONS (2)
  - ATRIAL FIBRILLATION [None]
  - WHITE BLOOD CELL COUNT DECREASED [None]
